FAERS Safety Report 8544765-6 (Version None)
Quarter: 2012Q3

REPORT INFORMATION
  Report Type: 
  Country: None (occurrence: None)
  Receive Date: 20120727
  Receipt Date: 20120530
  Transmission Date: 20120928
  Serious: Yes (Death, Life-Threatening, Hospitalization, Other)
  Sender: FDA-Public Use
  Company Number: US-ACTELION-A-US2011-58892

PATIENT

DRUGS (3)
  1. REVATIO [Concomitant]
  2. TYVASO [Concomitant]
  3. TRACLEER [Suspect]
     Indication: PULMONARY ARTERIAL HYPERTENSION
     Dosage: 125 MG, BID
     Route: 048

REACTIONS (4)
  - RENAL CELL CARCINOMA [None]
  - NEPHRECTOMY [None]
  - DEATH [None]
  - APPENDICECTOMY [None]
